FAERS Safety Report 19726601 (Version 1)
Quarter: 2021Q3

REPORT INFORMATION
  Report Type: Spontaneous
  Country: US (occurrence: US)
  Receive Date: 20210820
  Receipt Date: 20210820
  Transmission Date: 20211014
  Serious: Yes (Hospitalization)
  Sender: FDA-Public Use
  Company Number: US-EMCURE PHARMACEUTICALS LTD-2021-EPL-002674

PATIENT
  Age: 64 Year
  Weight: 90.1 kg

DRUGS (2)
  1. IMMUNOGLOBULIN, PALIVIZUMAB [Concomitant]
     Indication: RESPIRATORY SYNCYTIAL VIRUS INFECTION
     Route: 042
  2. RIBIVIRAN [Suspect]
     Active Substance: RIBAVIRIN
     Indication: RESPIRATORY SYNCYTIAL VIRUS INFECTION
     Dosage: 600 MILLIGRAM, TID
     Route: 048

REACTIONS (3)
  - Pulmonary congestion [Recovering/Resolving]
  - Wheezing [Recovering/Resolving]
  - Dyspnoea [Recovering/Resolving]
